FAERS Safety Report 6008261-2 (Version None)
Quarter: 2008Q4

REPORT INFORMATION
  Report Type: 
  Country: None (occurrence: None)
  Receive Date: 20081217
  Receipt Date: 20081204
  Transmission Date: 20090506
  Serious: Yes (Hospitalization)
  Sender: FDA-Public Use
  Company Number: PL-JNJFOC-20081203805

PATIENT
  Sex: Female
  Weight: 76 kg

DRUGS (3)
  1. ZALDIAR [Suspect]
     Indication: BACK PAIN
     Route: 048
  2. TETRAZEPAM [Suspect]
     Indication: BACK PAIN
     Route: 048
  3. POLTRAM [Suspect]
     Indication: BACK PAIN
     Route: 048

REACTIONS (4)
  - DIPLOPIA [None]
  - DIZZINESS [None]
  - ROAD TRAFFIC ACCIDENT [None]
  - SOMNOLENCE [None]
